FAERS Safety Report 13883782 (Version 1)
Quarter: 2017Q3

REPORT INFORMATION
  Report Type: Spontaneous
  Country: US (occurrence: US)
  Receive Date: 20170819
  Receipt Date: 20170819
  Transmission Date: 20171127
  Serious: No
  Sender: FDA-Public Use
  Company Number: US-TEVA-796885USA

PATIENT
  Age: 58 Year
  Sex: Female
  Weight: 69.92 kg

DRUGS (6)
  1. FENTORA [Suspect]
     Active Substance: FENTANYL CITRATE
     Indication: PAIN
     Route: 065
     Dates: start: 2009
  2. ROXICODONE [Concomitant]
     Active Substance: OXYCODONE HYDROCHLORIDE
     Indication: PAIN
  3. PHYTOMULTI [Concomitant]
     Indication: SUPPLEMENTATION THERAPY
     Dosage: 3600 MICROGRAM DAILY; 12/DAY
     Dates: start: 2009
  4. OXYCONTIN [Concomitant]
     Active Substance: OXYCODONE HYDROCHLORIDE
     Indication: PAIN
  5. MAGNESIUM [Concomitant]
     Active Substance: MAGNESIUM
     Indication: SLEEP DISORDER
  6. FISH OIL [Concomitant]
     Active Substance: FISH OIL

REACTIONS (3)
  - Nerve compression [Unknown]
  - Intervertebral disc protrusion [Unknown]
  - Product use in unapproved indication [Unknown]

NARRATIVE: CASE EVENT DATE: 2009
